FAERS Safety Report 9399104 (Version 1)
Quarter: 2013Q3

REPORT INFORMATION
  Report Type: Spontaneous
  Country: CN (occurrence: CN)
  Receive Date: 20130715
  Receipt Date: 20130715
  Transmission Date: 20140515
  Serious: Yes (Other)
  Sender: FDA-Public Use
  Company Number: CN-ROCHE-1247150

PATIENT
  Age: 68 Year
  Sex: Female
  Weight: 51 kg

DRUGS (2)
  1. CAPECITABINE [Suspect]
     Indication: COLON CANCER
     Route: 048
     Dates: start: 201208, end: 201306
  2. CAPECITABINE [Suspect]
     Route: 048
     Dates: start: 201306, end: 201307

REACTIONS (6)
  - Skin fissures [Not Recovered/Not Resolved]
  - Local swelling [Not Recovered/Not Resolved]
  - Blister [Not Recovered/Not Resolved]
  - Localised infection [Not Recovered/Not Resolved]
  - Dry eye [Not Recovered/Not Resolved]
  - Lacrimation increased [Not Recovered/Not Resolved]
